FAERS Safety Report 9366425 (Version 6)
Quarter: 2014Q1

REPORT INFORMATION
  Report Type: Spontaneous
  Country: GB (occurrence: GB)
  Receive Date: 20130625
  Receipt Date: 20140122
  Transmission Date: 20141002
  Serious: Yes (Life-Threatening, Hospitalization)
  Sender: FDA-Public Use
  Company Number: GB-PFIZER INC-2013176113

PATIENT
  Age: 69 Year
  Sex: Male

DRUGS (9)
  1. IBUPROFEN [Suspect]
     Indication: PAIN
     Dosage: 200MG 3 TIMES/DAY, AS NEEDED
     Route: 048
     Dates: start: 201005, end: 20130517
  2. IBUPROFEN [Suspect]
     Dosage: 400MG 3 TIMES/DAY, AS NEEDED LAST 10 DAYS POST OPERATION
     Route: 048
     Dates: start: 20130518, end: 20130528
  3. APIXABAN [Suspect]
     Indication: KNEE ARTHROPLASTY
     Dosage: 2.5 MG, 2X/DAY
     Route: 048
     Dates: start: 20130517, end: 20130527
  4. METFORMIN [Concomitant]
     Dosage: UNK
  5. LATANOPROST [Concomitant]
     Dosage: UNK
  6. TIMOLOL [Concomitant]
     Dosage: UNK
  7. SIMVASTATIN [Concomitant]
     Dosage: UNK
     Route: 065
  8. AMLODIPINE [Concomitant]
     Dosage: UNK
  9. BENDROFLUMETHIAZIDE [Concomitant]
     Dosage: UNK

REACTIONS (2)
  - Gastrointestinal haemorrhage [Recovering/Resolving]
  - Fall [Unknown]
